FAERS Safety Report 23917489 (Version 1)
Quarter: 2024Q2

REPORT INFORMATION
  Report Type: Report from Study
  Country: US (occurrence: US)
  Receive Date: 20240529
  Receipt Date: 20240529
  Transmission Date: 20240716
  Serious: Yes (Other)
  Sender: FDA-Public Use
  Company Number: US-BIOGEN-2024BI01266607

PATIENT
  Sex: Female

DRUGS (1)
  1. VUMERITY [Suspect]
     Active Substance: DIROXIMEL FUMARATE
     Indication: Multiple sclerosis
     Route: 050
     Dates: start: 20230721

REACTIONS (6)
  - Seizure [Unknown]
  - Conjunctivitis [Unknown]
  - Respiratory tract infection [Unknown]
  - Multiple sclerosis relapse [Unknown]
  - Immune system disorder [Unknown]
  - Conversion disorder [Unknown]
